FAERS Safety Report 7127714-7 (Version None)
Quarter: 2010Q4

REPORT INFORMATION
  Report Type: 
  Country: None (occurrence: None)
  Receive Date: 20101130
  Receipt Date: 20101116
  Transmission Date: 20110411
  Serious: No
  Sender: FDA-Public Use
  Company Number: US-BIOGENIDEC-2010BI037702

PATIENT
  Age: 45 Year
  Sex: Female

DRUGS (1)
  1. TYSABRI [Suspect]
     Indication: MULTIPLE SCLEROSIS
     Route: 042
     Dates: start: 20100616

REACTIONS (6)
  - CONTUSION [None]
  - FATIGUE [None]
  - LIMB INJURY [None]
  - NASOPHARYNGITIS [None]
  - PAIN IN EXTREMITY [None]
  - STRESS [None]
